FAERS Safety Report 21023673 (Version 1)
Quarter: 2022Q2

REPORT INFORMATION
  Report Type: Spontaneous
  Country: US (occurrence: None)
  Receive Date: 20220629
  Receipt Date: 20220629
  Transmission Date: 20220721
  Serious: Yes (Hospitalization)
  Sender: FDA-Public Use
  Company Number: None

PATIENT
  Age: 68 Year
  Sex: Female

DRUGS (1)
  1. BEBTELOVIMAB [Suspect]
     Active Substance: BEBTELOVIMAB
     Indication: COVID-19
     Dosage: FREQUENCY : ONCE;?
     Route: 042
     Dates: start: 20220601, end: 20220601

REACTIONS (9)
  - Nausea [None]
  - Vomiting [None]
  - Diarrhoea [None]
  - Pyrexia [None]
  - COVID-19 [None]
  - Culture positive [None]
  - Bacterial infection [None]
  - Laboratory test interference [None]
  - False positive investigation result [None]

NARRATIVE: CASE EVENT DATE: 20220603
